FAERS Safety Report 8336370-1 (Version None)
Quarter: 2012Q2

REPORT INFORMATION
  Report Type: 
  Country: None (occurrence: None)
  Receive Date: 20120504
  Receipt Date: 20120427
  Transmission Date: 20120825
  Serious: Yes (Other)
  Sender: FDA-Public Use
  Company Number: PHEH2012US004900

PATIENT
  Sex: Female
  Weight: 54 kg

DRUGS (8)
  1. STALEVO 100 [Suspect]
     Dosage: 150 MG, 5 PER DAY
     Route: 048
     Dates: start: 20040101
  2. SINEMET CR [Concomitant]
     Indication: PARKINSON'S DISEASE
     Dosage: 1 DF, QD
     Route: 048
  3. CLONAZEPAM [Concomitant]
     Indication: ANXIETY
     Dosage: 2 DF, QD
     Route: 048
  4. STALEVO 100 [Suspect]
     Indication: PARKINSON'S DISEASE
     Dosage: 150 MG, ONCE A DAY
     Route: 048
     Dates: start: 20110531
  5. STALEVO 100 [Suspect]
     Dosage: 150 MG
     Route: 048
  6. STALEVO 100 [Suspect]
     Dosage: 150 MG
     Route: 048
  7. STALEVO 100 [Suspect]
     Dosage: 150 MG
     Route: 048
     Dates: end: 20120229
  8. ROPINIROLE XL [Concomitant]
     Indication: PARKINSON'S DISEASE
     Dosage: 1 DF, QD
     Route: 048

REACTIONS (2)
  - PARKINSON'S DISEASE [None]
  - DRUG INEFFECTIVE [None]
